FAERS Safety Report 6121616-0 (Version None)
Quarter: 2009Q1

REPORT INFORMATION
  Report Type: 
  Country: None (occurrence: None)
  Receive Date: 20090317
  Receipt Date: 20090309
  Transmission Date: 20090719
  Serious: Yes (Hospitalization, Other)
  Sender: FDA-Public Use
  Company Number: PHHY2008FR21393

PATIENT
  Sex: Female

DRUGS (2)
  1. ZOMETA [Suspect]
     Indication: MULTIPLE MYELOMA
     Dosage: 4 MG, QMO
     Dates: start: 20050712, end: 20060828
  2. IDEOS [Concomitant]
     Dosage: 2 TAB PER DAY
     Dates: start: 20050712

REACTIONS (15)
  - AUTOLOGOUS BONE MARROW TRANSPLANTATION THERAPY [None]
  - DEBRIDEMENT [None]
  - ERYTHEMA [None]
  - IMPAIRED HEALING [None]
  - LYMPH NODE PAIN [None]
  - LYMPHADENOPATHY [None]
  - MASTICATION DISORDER [None]
  - MOUTH ULCERATION [None]
  - OSTEONECROSIS [None]
  - PAIN [None]
  - PURULENT DISCHARGE [None]
  - SEQUESTRECTOMY [None]
  - SOFT TISSUE INFECTION [None]
  - SWELLING [None]
  - TOOTH EXTRACTION [None]
